FAERS Safety Report 7956532-2 (Version None)
Quarter: 2011Q4

REPORT INFORMATION
  Report Type: 
  Country: None (occurrence: None)
  Receive Date: 20111205
  Receipt Date: 20111129
  Transmission Date: 20120403
  Serious: Yes (Death)
  Sender: FDA-Public Use
  Company Number: AT-JNJFOC-20111200872

PATIENT

DRUGS (4)
  1. HEPARIN [Suspect]
     Indication: PERCUTANEOUS CORONARY INTERVENTION
     Dosage: 1000IU/H CONTINOUS INFUSION
     Route: 042
  2. ABCIXIMAB [Suspect]
     Indication: PERCUTANEOUS CORONARY INTERVENTION
     Dosage: 0.125 UG/KG/PER MINUTE CONTINUOUS INFUSION
     Route: 042
  3. HEPARIN [Suspect]
     Dosage: MAXIMUM DOSE OF 4000 IU
     Route: 042
  4. ABCIXIMAB [Suspect]
     Dosage: BOLUS
     Route: 042

REACTIONS (1)
  - GASTROINTESTINAL HAEMORRHAGE [None]
